FAERS Safety Report 10537623 (Version 1)
Quarter: 2014Q4

REPORT INFORMATION
  Report Type: Spontaneous
  Country: US (occurrence: None)
  Receive Date: 20141022
  Receipt Date: 20141022
  Transmission Date: 20150529
  Serious: No
  Sender: FDA-Public Use
  Company Number: None

PATIENT
  Age: 31 Year
  Sex: Female

DRUGS (1)
  1. NEULASTA [Suspect]
     Active Substance: PEGFILGRASTIM
     Indication: NEUTROPENIA
     Dosage: INJECT 6MG ?EVERY 21 DAYS ?SUBCUTANEOUS
     Route: 058

REACTIONS (3)
  - Aphonia [None]
  - Drug ineffective [None]
  - Dysphonia [None]

NARRATIVE: CASE EVENT DATE: 20141010
